FAERS Safety Report 6793125-7 (Version None)
Quarter: 2010Q2

REPORT INFORMATION
  Report Type: 
  Country: None (occurrence: None)
  Receive Date: 20100624
  Receipt Date: 20090805
  Transmission Date: 20101027
  Serious: No
  Sender: FDA-Public Use
  Company Number: US-MYLANLABS-2009S1009080

PATIENT
  Age: 17 Year
  Sex: Female

DRUGS (2)
  1. CLOZAPINE [Suspect]
     Indication: MOOD DISORDER DUE TO A GENERAL MEDICAL CONDITION
     Route: 048
  2. CLOZAPINE [Suspect]
     Route: 048

REACTIONS (2)
  - GRANULOCYTOPENIA [None]
  - TREATMENT NONCOMPLIANCE [None]
